FAERS Safety Report 8613153-6 (Version None)
Quarter: 2012Q3

REPORT INFORMATION
  Report Type: 
  Country: None (occurrence: None)
  Receive Date: 20120822
  Receipt Date: 20120731
  Transmission Date: 20120928
  Serious: Yes (Hospitalization)
  Sender: FDA-Public Use
  Company Number: JP-009507513-1208JPN000331

PATIENT

DRUGS (9)
  1. TELAVIC [Suspect]
     Indication: HEPATITIS C
     Route: 048
     Dates: start: 20120405, end: 20120529
  2. BISULASE [Concomitant]
     Route: 048
     Dates: start: 20120417, end: 20120605
  3. PEG-INTRON [Suspect]
     Indication: HEPATITIS C
     Dosage: 1.5MCG/KG/WEEK
     Route: 058
     Dates: start: 20120405, end: 20120605
  4. CELESTAMINE TAB [Concomitant]
     Route: 048
     Dates: start: 20120522
  5. GASMOTIN [Concomitant]
     Dosage: 15 MG, ONCE
     Route: 048
     Dates: start: 20120417, end: 20120605
  6. PROMAC (POLAPREZINC) [Concomitant]
     Route: 048
     Dates: start: 20120417, end: 20120605
  7. OMEPRAZOLE [Concomitant]
     Route: 048
     Dates: start: 20120417, end: 20120605
  8. ALLOPURINOL [Concomitant]
     Dosage: 200 MG, ONCE
     Route: 048
     Dates: start: 20120508, end: 20120605
  9. REBETOL [Suspect]
     Indication: HEPATITIS C
     Route: 048
     Dates: start: 20120405, end: 20120605

REACTIONS (1)
  - DRUG ERUPTION [None]
